FAERS Safety Report 19122532 (Version 1)
Quarter: 2021Q2

REPORT INFORMATION
  Report Type: Spontaneous
  Country: FR (occurrence: FR)
  Receive Date: 20210412
  Receipt Date: 20210412
  Transmission Date: 20210717
  Serious: Yes (Hospitalization)
  Sender: FDA-Public Use
  Company Number: FR-BAYER-2021-120698

PATIENT
  Age: 24 Year
  Sex: Male

DRUGS (7)
  1. LANZOR [Concomitant]
     Active Substance: LANSOPRAZOLE
     Dosage: 1 DF, QD
     Route: 048
     Dates: start: 20200502
  2. SERESTA [Concomitant]
     Active Substance: OXAZEPAM
     Dosage: 1 DF, QD
     Route: 048
  3. URBANYL [Concomitant]
     Active Substance: CLOBAZAM
     Dosage: UNK
     Route: 048
  4. LAMICTAL [Concomitant]
     Active Substance: LAMOTRIGINE
     Route: 048
  5. INIPOMP [Concomitant]
     Active Substance: PANTOPRAZOLE SODIUM
     Dosage: 80 MG, ONCE
     Route: 042
     Dates: start: 20200430
  6. NAPROXEN SODIUM ({= 220 MG) [Suspect]
     Active Substance: NAPROXEN SODIUM
     Dosage: NON RENSEIGN?E
     Route: 048
     Dates: start: 20200414, end: 20200424
  7. LOXAPAC [LOXAPINE] [Concomitant]
     Active Substance: LOXAPINE
     Route: 048

REACTIONS (1)
  - Haematemesis [Recovered/Resolved]

NARRATIVE: CASE EVENT DATE: 20200430
